FAERS Safety Report 13140334 (Version 1)
Quarter: 2017Q1

REPORT INFORMATION
  Report Type: Spontaneous
  Country: US (occurrence: US)
  Receive Date: 20170123
  Receipt Date: 20170123
  Transmission Date: 20170428
  Serious: No
  Sender: FDA-Public Use
  Company Number: US-UNITED THERAPEUTICS-UNT-2016-013933

PATIENT
  Age: 26 Year
  Sex: Female
  Weight: 49.89 kg

DRUGS (3)
  1. ADCIRCA [Concomitant]
     Active Substance: TADALAFIL
     Indication: PRODUCT USED FOR UNKNOWN INDICATION
  2. LETAIRIS [Concomitant]
     Active Substance: AMBRISENTAN
     Indication: PRODUCT USED FOR UNKNOWN INDICATION
  3. REMODULIN [Suspect]
     Active Substance: TREPROSTINIL
     Indication: PULMONARY HYPERTENSION
     Dosage: 0.131 ?G/KG, CONTINUING
     Route: 041
     Dates: start: 20140225

REACTIONS (2)
  - Central venous catheterisation [Recovering/Resolving]
  - Complication associated with device [Recovering/Resolving]

NARRATIVE: CASE EVENT DATE: 201608
